FAERS Safety Report 22312958 (Version 4)
Quarter: 2023Q2

REPORT INFORMATION
  Report Type: Report from Study
  Country: US (occurrence: US)
  Receive Date: 20230512
  Receipt Date: 20230614
  Transmission Date: 20230722
  Serious: Yes (Other)
  Sender: FDA-Public Use
  Company Number: US-AMGEN-USASP2023080204

PATIENT
  Age: 69 Year
  Sex: Female

DRUGS (1)
  1. EVENITY [Suspect]
     Active Substance: ROMOSOZUMAB-AQQG
     Indication: Osteoporosis
     Dosage: 210 MILLIGRAM, QMO
     Route: 058
     Dates: start: 202207

REACTIONS (2)
  - Spinal compression fracture [Not Recovered/Not Resolved]
  - Device physical property issue [Recovered/Resolved]

NARRATIVE: CASE EVENT DATE: 20230101
